FAERS Safety Report 7723914-3 (Version None)
Quarter: 2011Q3

REPORT INFORMATION
  Report Type: 
  Country: None (occurrence: None)
  Receive Date: 20110829
  Receipt Date: 20110815
  Transmission Date: 20111222
  Serious: No
  Sender: FDA-Public Use
  Company Number: 2011MA011903

PATIENT
  Age: 55 Year
  Sex: Female
  Weight: 97.5234 kg

DRUGS (19)
  1. CARAFATE [Concomitant]
  2. VOLTAREN [Concomitant]
  3. AVELOX [Concomitant]
  4. NEXIUM [Concomitant]
  5. SPIRIVA [Concomitant]
  6. PRILOSEC [Concomitant]
  7. COMBIVENT [Concomitant]
  8. LIDODERM [Concomitant]
  9. KADIAN [Concomitant]
  10. BUSPIRONE [Concomitant]
  11. NASONEX [Concomitant]
  12. LYRICA [Concomitant]
  13. LORCET-HD [Concomitant]
  14. ATENOLOL [Concomitant]
  15. MYSOLINE [Concomitant]
  16. HYDROCODONE [Concomitant]
  17. CHANTIX [Concomitant]
  18. METOCLOPRAMIDE [Suspect]
     Indication: ABDOMINAL PAIN
     Dosage: 10 MG, TID, PO
     Route: 048
     Dates: start: 20011014, end: 20090101
  19. SINGULAIR [Concomitant]

REACTIONS (25)
  - CEREBRAL SMALL VESSEL ISCHAEMIC DISEASE [None]
  - ABDOMINAL DISTENSION [None]
  - ESSENTIAL TREMOR [None]
  - GASTRITIS [None]
  - INTERVERTEBRAL DISC PROTRUSION [None]
  - CERVICAL SPINAL STENOSIS [None]
  - CAROTID BRUIT [None]
  - DRUG INEFFECTIVE [None]
  - RADICULOPATHY [None]
  - OTITIS MEDIA [None]
  - LIGAMENT SPRAIN [None]
  - CERVICAL CORD COMPRESSION [None]
  - HEADACHE [None]
  - MYALGIA [None]
  - VERTEBRAL FORAMINAL STENOSIS [None]
  - SPINAL OSTEOARTHRITIS [None]
  - ABDOMINAL PAIN [None]
  - TREATMENT NONCOMPLIANCE [None]
  - PANCREATIC CYST [None]
  - MUSCLE SPASMS [None]
  - FLATULENCE [None]
  - GASTROINTESTINAL INFLAMMATION [None]
  - RHINITIS [None]
  - PANCREATIC DISORDER [None]
  - FACET JOINT SYNDROME [None]
